FAERS Safety Report 10060423 (Version 1)
Quarter: 2014Q2

REPORT INFORMATION
  Report Type: Report from Study
  Country: US (occurrence: US)
  Receive Date: 20140404
  Receipt Date: 20140404
  Transmission Date: 20141212
  Serious: No
  Sender: FDA-Public Use
  Company Number: US-ALEXION-A201401069

PATIENT
  Sex: 0

DRUGS (2)
  1. SOLIRIS [Suspect]
     Indication: HAEMOLYTIC URAEMIC SYNDROME
     Dosage: 1200 MG, Q2W
     Dates: start: 20140307
  2. MENINGOCOCCAL VACCINE [Concomitant]
     Indication: IMMUNISATION
     Dosage: UNK
     Dates: start: 20140307, end: 20140307

REACTIONS (1)
  - Pyrexia [Unknown]
